FAERS Safety Report 19006691 (Version 1)
Quarter: 2021Q1

REPORT INFORMATION
  Report Type: Spontaneous
  Country: US (occurrence: US)
  Receive Date: 20210315
  Receipt Date: 20210315
  Transmission Date: 20210420
  Serious: Yes (Other)
  Sender: FDA-Public Use
  Company Number: US-LUPIN PHARMACEUTICALS INC.-2021-03004

PATIENT
  Age: 71 Year
  Sex: Male

DRUGS (7)
  1. QUETIAPINE FUMARATE. [Suspect]
     Active Substance: QUETIAPINE FUMARATE
     Dosage: 50 MILLIGRAM, QD
     Route: 065
     Dates: start: 2017, end: 2017
  2. CITALOPRAM [Concomitant]
     Active Substance: CITALOPRAM HYDROBROMIDE
     Indication: DEPRESSION
     Dosage: 20 MILLIGRAM, QD
     Route: 065
  3. QUETIAPINE FUMARATE. [Suspect]
     Active Substance: QUETIAPINE FUMARATE
     Dosage: 25 MILLIGRAM, QD
     Route: 065
     Dates: start: 2017, end: 2017
  4. QUETIAPINE FUMARATE. [Suspect]
     Active Substance: QUETIAPINE FUMARATE
     Dosage: 25 MILLIGRAM, QD, IN THE MORNING
     Route: 065
     Dates: start: 2017
  5. QUETIAPINE FUMARATE. [Suspect]
     Active Substance: QUETIAPINE FUMARATE
     Dosage: 50 MILLIGRAM, QD, IN THE EVENING
     Route: 065
     Dates: start: 2017
  6. QUETIAPINE FUMARATE. [Suspect]
     Active Substance: QUETIAPINE FUMARATE
     Indication: PARKINSON^S DISEASE PSYCHOSIS
     Dosage: 12.5 MILLIGRAM, QD
     Route: 065
     Dates: start: 2017, end: 2017
  7. CARBIDOPA;LEVODOPA [Concomitant]
     Active Substance: CARBIDOPA\LEVODOPA
     Indication: PARKINSON^S DISEASE PSYCHOSIS
     Dosage: 1 DOSAGE FORM, TID
     Route: 065

REACTIONS (4)
  - Drug ineffective [Unknown]
  - Sedation complication [Unknown]
  - Thinking abnormal [Unknown]
  - Somnolence [Unknown]

NARRATIVE: CASE EVENT DATE: 2017
